FAERS Safety Report 15943146 (Version 2)
Quarter: 2019Q3

REPORT INFORMATION
  Report Type: Spontaneous
  Country: US (occurrence: US)
  Receive Date: 20190210
  Receipt Date: 20190911
  Transmission Date: 20191004
  Serious: Yes (Other)
  Sender: FDA-Public Use
  Company Number: US-ASTRAZENECA-2019SE11626

PATIENT
  Age: 64 Year
  Sex: Female
  Weight: 62.1 kg

DRUGS (55)
  1. PROTONIX [Suspect]
     Active Substance: PANTOPRAZOLE SODIUM
     Indication: GASTROOESOPHAGEAL REFLUX DISEASE
     Route: 065
     Dates: start: 2001, end: 2004
  2. GABAPENTIN. [Concomitant]
     Active Substance: GABAPENTIN
  3. TOPAMAX [Concomitant]
     Active Substance: TOPIRAMATE
  4. LEVOTHYROXINE. [Concomitant]
     Active Substance: LEVOTHYROXINE
  5. HYDROCODONE [Concomitant]
     Active Substance: HYDROCODONE
  6. BENADRYL [Concomitant]
     Active Substance: DIPHENHYDRAMINE HYDROCHLORIDE
  7. AMITRIPTYLINE [Concomitant]
     Active Substance: AMITRIPTYLINE
  8. AMLODIPINE [Concomitant]
     Active Substance: AMLODIPINE BESYLATE
  9. NOVOLOG [Concomitant]
     Active Substance: INSULIN ASPART
  10. ATORVASTATIN [Concomitant]
     Active Substance: ATORVASTATIN
  11. NEXIUM [Suspect]
     Active Substance: ESOMEPRAZOLE MAGNESIUM
     Indication: GASTROOESOPHAGEAL REFLUX DISEASE
     Route: 048
     Dates: start: 20010101, end: 20051231
  12. LABETALOL [Concomitant]
     Active Substance: LABETALOL\LABETALOL HYDROCHLORIDE
  13. DOXEPIN [Concomitant]
     Active Substance: DOXEPIN
  14. HYDROCODONE BITARTRATE AND ACETAMINOPHEN [Concomitant]
     Active Substance: ACETAMINOPHEN\HYDROCODONE BITARTRATE
  15. TAGAMET [Concomitant]
     Active Substance: CIMETIDINE
  16. CLONAZEPAM. [Concomitant]
     Active Substance: CLONAZEPAM
  17. TRAZODONE [Concomitant]
     Active Substance: TRAZODONE HYDROCHLORIDE
  18. LEVEMIR [Concomitant]
     Active Substance: INSULIN DETEMIR
  19. INSULIN [Concomitant]
     Active Substance: INSULIN NOS
  20. AMOXICILLINE [Concomitant]
     Active Substance: AMOXICILLIN
  21. ACIPHEX [Suspect]
     Active Substance: RABEPRAZOLE SODIUM
     Indication: GASTROOESOPHAGEAL REFLUX DISEASE
     Route: 065
     Dates: end: 2005
  22. LIPITOR [Concomitant]
     Active Substance: ATORVASTATIN CALCIUM
  23. ACETAMINOPHEN. [Concomitant]
     Active Substance: ACETAMINOPHEN
  24. ZANTAC [Concomitant]
     Active Substance: RANITIDINE HYDROCHLORIDE
  25. NITROFURANTOIN. [Concomitant]
     Active Substance: NITROFURANTOIN
  26. BUPROPION. [Concomitant]
     Active Substance: BUPROPION
  27. LEVOTHYROXINE. [Concomitant]
     Active Substance: LEVOTHYROXINE
  28. BUSPIRONE [Concomitant]
     Active Substance: BUSPIRONE HYDROCHLORIDE
  29. RIZATRIPTAN. [Concomitant]
     Active Substance: RIZATRIPTAN
  30. LEVAQUIN [Concomitant]
     Active Substance: LEVOFLOXACIN
  31. MELATONIN [Concomitant]
     Active Substance: MELATONIN
  32. VITAMIN D3 [Concomitant]
     Active Substance: CHOLECALCIFEROL
  33. CEPHALEXIN. [Concomitant]
     Active Substance: CEPHALEXIN
  34. NEXIUM [Suspect]
     Active Substance: ESOMEPRAZOLE MAGNESIUM
     Indication: GASTROOESOPHAGEAL REFLUX DISEASE
     Route: 048
     Dates: start: 2001, end: 2012
  35. TRAZODONE [Concomitant]
     Active Substance: TRAZODONE HYDROCHLORIDE
  36. LISINOPRIL. [Concomitant]
     Active Substance: LISINOPRIL
  37. LABETALOL [Concomitant]
     Active Substance: LABETALOL\LABETALOL HYDROCHLORIDE
  38. CEFDINIR. [Concomitant]
     Active Substance: CEFDINIR
  39. DOXYCYCLINE. [Concomitant]
     Active Substance: DOXYCYCLINE
  40. PRILOSEC [Suspect]
     Active Substance: OMEPRAZOLE MAGNESIUM
     Indication: GASTROOESOPHAGEAL REFLUX DISEASE
     Dosage: OMEPRAZOLE OTC
     Route: 065
     Dates: start: 2017
  41. DOXEPIN [Concomitant]
     Active Substance: DOXEPIN
  42. AXID [Concomitant]
     Active Substance: NIZATIDINE
  43. RIZATRIPTAN. [Concomitant]
     Active Substance: RIZATRIPTAN
  44. MELATONIN [Concomitant]
     Active Substance: MELATONIN
  45. INDERAL [Concomitant]
     Active Substance: PROPRANOLOL HYDROCHLORIDE
  46. DOXYCYCLINE. [Concomitant]
     Active Substance: DOXYCYCLINE
  47. TOPIRAMATE. [Concomitant]
     Active Substance: TOPIRAMATE
  48. PRILOSEC [Suspect]
     Active Substance: OMEPRAZOLE MAGNESIUM
     Indication: GASTROOESOPHAGEAL REFLUX DISEASE
     Route: 048
     Dates: start: 1990, end: 2003
  49. DARVOCET [Concomitant]
     Active Substance: ACETAMINOPHEN\PROPOXYPHENE HYDROCHLORIDE
  50. MIDRIN [Concomitant]
     Active Substance: ACETAMINOPHEN\DICHLORALPHENAZONE\ISOMETHEPTENE
  51. CIPROFLOXACIN. [Concomitant]
     Active Substance: CIPROFLOXACIN
  52. DEXILANT [Concomitant]
     Active Substance: DEXLANSOPRAZOLE
  53. RANITIDINE. [Concomitant]
     Active Substance: RANITIDINE
  54. HUMALOG [Concomitant]
     Active Substance: INSULIN LISPRO
  55. TIZANIDINE. [Concomitant]
     Active Substance: TIZANIDINE

REACTIONS (2)
  - Chronic kidney disease [Not Recovered/Not Resolved]
  - Acute kidney injury [Not Recovered/Not Resolved]

NARRATIVE: CASE EVENT DATE: 2018
